FAERS Safety Report 23644824 (Version 1)
Quarter: 2024Q1

REPORT INFORMATION
  Report Type: Report from Study
  Country: UZ (occurrence: UZ)
  Receive Date: 20240318
  Receipt Date: 20240318
  Transmission Date: 20240410
  Serious: Yes (Death, Hospitalization)
  Sender: FDA-Public Use
  Company Number: UZ-MYLANLABS-2024M1023982

PATIENT
  Age: 65 Year
  Sex: Male
  Weight: 47 kg

DRUGS (5)
  1. PRETOMANID [Suspect]
     Active Substance: PRETOMANID
     Indication: Pulmonary tuberculosis
     Dosage: 200
     Route: 065
     Dates: start: 20231208
  2. BEDAQUILINE [Suspect]
     Active Substance: BEDAQUILINE
     Indication: Pulmonary tuberculosis
     Dosage: 400
     Route: 065
     Dates: start: 20231208, end: 20231224
  3. BEDAQUILINE [Suspect]
     Active Substance: BEDAQUILINE
     Dosage: 200X3/7
     Route: 065
     Dates: start: 20231225
  4. LINEZOLID [Suspect]
     Active Substance: LINEZOLID
     Indication: Pulmonary tuberculosis
     Dosage: 600
     Route: 065
     Dates: start: 20231208
  5. CIPROFLOXACIN [Suspect]
     Active Substance: CIPROFLOXACIN
     Indication: Pulmonary tuberculosis
     Dosage: 100
     Route: 065
     Dates: start: 20231208

REACTIONS (6)
  - Death [Fatal]
  - Fall [Unknown]
  - Humerus fracture [Unknown]
  - Loss of consciousness [Unknown]
  - Respiratory depression [Unknown]
  - Anaemia [Unknown]

NARRATIVE: CASE EVENT DATE: 20240127
